FAERS Safety Report 22203081 (Version 1)
Quarter: 2023Q2

REPORT INFORMATION
  Report Type: Report from Study
  Country: US (occurrence: US)
  Receive Date: 20230412
  Receipt Date: 20230412
  Transmission Date: 20230722
  Serious: Yes (Hospitalization)
  Sender: FDA-Public Use
  Company Number: US-ABBVIE-4723069

PATIENT
  Sex: Female

DRUGS (1)
  1. HUMIRA [Suspect]
     Active Substance: ADALIMUMAB
     Indication: Hidradenitis
     Dosage: CITRATE FREE
     Route: 058
     Dates: start: 20220928

REACTIONS (4)
  - Road traffic accident [Not Recovered/Not Resolved]
  - Urinary tract infection [Recovering/Resolving]
  - Hyperthyroidism [Unknown]
  - Dizziness [Not Recovered/Not Resolved]
